FAERS Safety Report 9641880 (Version 2)
Quarter: 2013Q4

REPORT INFORMATION
  Report Type: Spontaneous
  Country: US (occurrence: US)
  Receive Date: 20131023
  Receipt Date: 20131105
  Transmission Date: 20140711
  Serious: Yes (Other)
  Sender: FDA-Public Use
  Company Number: US-TEVA-438972USA

PATIENT
  Sex: Female
  Weight: 93.07 kg

DRUGS (6)
  1. PARAGARD 380A [Suspect]
     Indication: CONTRACEPTION
     Route: 015
     Dates: start: 201208
  2. LABETALOL [Concomitant]
     Indication: HYPERTENSION
  3. LEXAPRO [Concomitant]
     Indication: DEPRESSION
  4. LEXAPRO [Concomitant]
     Indication: ANXIETY
  5. SEROQUEL XR [Concomitant]
     Indication: ANXIETY
  6. SEROQUEL XR [Concomitant]
     Indication: DEPRESSION

REACTIONS (6)
  - Haemoglobin decreased [Unknown]
  - Menorrhagia [Recovered/Resolved]
  - Skin discolouration [Unknown]
  - Glossodynia [Not Recovered/Not Resolved]
  - Fatigue [Unknown]
  - Malaise [Unknown]
